FAERS Safety Report 14716282 (Version 3)
Quarter: 2018Q2

REPORT INFORMATION
  Report Type: Spontaneous
  Country: US (occurrence: US)
  Receive Date: 20180404
  Receipt Date: 20180411
  Transmission Date: 20180711
  Serious: Yes (Hospitalization, Other)
  Sender: FDA-Public Use
  Company Number: US-PFIZER INC-2018137584

PATIENT
  Sex: Male

DRUGS (1)
  1. XELJANZ [Suspect]
     Active Substance: TOFACITINIB CITRATE
     Indication: RHEUMATOID ARTHRITIS
     Dosage: UNK

REACTIONS (7)
  - Oedema peripheral [Unknown]
  - Gene mutation [Unknown]
  - Cardiomyopathy [Unknown]
  - Chest pain [Unknown]
  - Cardiovascular disorder [Unknown]
  - Myelodysplastic syndrome [Unknown]
  - Acute pulmonary oedema [Unknown]
